FAERS Safety Report 8607943-3 (Version None)
Quarter: 2012Q3

REPORT INFORMATION
  Report Type: 
  Country: None (occurrence: None)
  Receive Date: 20120821
  Receipt Date: 20120813
  Transmission Date: 20120928
  Serious: Yes (Hospitalization)
  Sender: FDA-Public Use
  Company Number: US-BRISTOL-MYERS SQUIBB COMPANY-16461337

PATIENT
  Age: 71 Year
  Sex: Male
  Weight: 84 kg

DRUGS (16)
  1. ASPIRIN [Concomitant]
  2. BACLOFEN [Concomitant]
  3. CARBOPLATIN [Suspect]
     Indication: NON-SMALL CELL LUNG CANCER
     Dosage: RECEIVED LAST DOSE AT 726MG
     Route: 042
     Dates: start: 20120116, end: 20120206
  4. TRAMADOL HCL [Concomitant]
  5. LEVETIRACETAM [Concomitant]
  6. CITALOPRAM HYDROBROMIDE [Concomitant]
  7. TEMAZEPAM [Concomitant]
  8. PREDNISONE [Concomitant]
  9. TRIAMTERENE AND HYDROCHLOROTHIAZIDE [Concomitant]
  10. PRAVASTATIN [Concomitant]
  11. PACLITAXEL [Suspect]
     Indication: NON-SMALL CELL LUNG CANCER
     Dosage: RECEIVED LAST DOSE OF 418MG
     Route: 042
     Dates: start: 20120116, end: 20120206
  12. METOPROLOL TARTRATE [Concomitant]
  13. LISINOPRIL [Concomitant]
  14. ZOLPIDEM [Concomitant]
  15. HYDROCODONE BITARTRATE + ACETAMINOPHEN [Concomitant]
  16. ALENDRONATE SODIUM [Concomitant]

REACTIONS (2)
  - DUODENAL ULCER [None]
  - GASTROINTESTINAL HAEMORRHAGE [None]
